FAERS Safety Report 5051534-0 (Version None)
Quarter: 2006Q3

REPORT INFORMATION
  Report Type: 
  Country: None (occurrence: None)
  Receive Date: 20060714
  Receipt Date: 20060616
  Transmission Date: 20061208
  Serious: Yes (Other)
  Sender: FDA-Public Use
  Company Number: PHNU2006DE02290

PATIENT
  Age: 40 Year

DRUGS (1)
  1. LIORESAL [Suspect]
     Indication: MEDICATION ERROR
     Dosage: UNKNOWN
     Route: 048
     Dates: start: 20060616, end: 20060616

REACTIONS (5)
  - ACCIDENTAL EXPOSURE [None]
  - GASTROINTESTINAL PAIN [None]
  - HYPERTHERMIA [None]
  - MEDICATION ERROR [None]
  - MUSCULAR WEAKNESS [None]
